FAERS Safety Report 11427323 (Version 1)
Quarter: 2015Q3

REPORT INFORMATION
  Report Type: Spontaneous
  Country: US (occurrence: None)
  Receive Date: 20150827
  Receipt Date: 20150827
  Transmission Date: 20151125
  Serious: Yes (Other)
  Sender: FDA-Public Use
  Company Number: None

PATIENT
  Age: 58 Year
  Sex: Female

DRUGS (1)
  1. HUMIRA [Suspect]
     Active Substance: ADALIMUMAB
     Indication: CROHN^S DISEASE
     Dosage: 40 MG ORAL INJ SQ EVERY OTHER WEEK
     Route: 048
     Dates: start: 20150610

REACTIONS (2)
  - Swelling [None]
  - Rash [None]

NARRATIVE: CASE EVENT DATE: 20150701
